FAERS Safety Report 7499891-X (Version None)
Quarter: 2011Q2

REPORT INFORMATION
  Report Type: 
  Country: None (occurrence: None)
  Receive Date: 20110524
  Receipt Date: 20110520
  Transmission Date: 20111010
  Serious: Yes (Life-Threatening)
  Sender: FDA-Public Use
  Company Number: DE-GENZYME-RENA-1001184

PATIENT
  Age: 72 Year
  Sex: Female
  Weight: 83 kg

DRUGS (1)
  1. RENVELA [Suspect]
     Indication: HYPERPHOSPHATAEMIA
     Dosage: 1.6 G, QD
     Route: 048
     Dates: start: 20101128, end: 20101201

REACTIONS (4)
  - DIZZINESS [None]
  - DIARRHOEA [None]
  - REACTION TO DRUG EXCIPIENTS [None]
  - SYNCOPE [None]
